FAERS Safety Report 7085031-8 (Version None)
Quarter: 2010Q4

REPORT INFORMATION
  Report Type: 
  Country: None (occurrence: None)
  Receive Date: 20101105
  Receipt Date: 20101006
  Transmission Date: 20110411
  Serious: No
  Sender: FDA-Public Use
  Company Number: US-BAYER-201036085NA

PATIENT
  Age: 47 Year
  Sex: Male

DRUGS (3)
  1. BETASERON [Suspect]
     Route: 058
  2. BETASERON [Suspect]
     Route: 058
  3. TYSABRI [Concomitant]
     Dates: start: 20070101

REACTIONS (1)
  - PAIN [None]
